FAERS Safety Report 7065488-9 (Version None)
Quarter: 2010Q4

REPORT INFORMATION
  Report Type: 
  Country: None (occurrence: None)
  Receive Date: 20101019
  Receipt Date: 20101005
  Transmission Date: 20110411
  Serious: Yes (Hospitalization)
  Sender: FDA-Public Use
  Company Number: 019914

PATIENT
  Sex: Male
  Weight: 95.2 kg

DRUGS (4)
  1. KEPPRA [Suspect]
     Indication: EPILEPSY
     Dosage: 1000 MG BID ORAL, 500 MG BID ORAL, INTRAVENOUS
     Route: 042
     Dates: start: 20100301
  2. KEPPRA [Suspect]
     Indication: EPILEPSY
     Dosage: 1000 MG BID ORAL, 500 MG BID ORAL, INTRAVENOUS
     Route: 042
     Dates: start: 20100901
  3. LACOSAMIDE [Suspect]
     Indication: EPILEPSY
     Dosage: 150 MG QD ORAL
     Route: 048
     Dates: start: 20100929
  4. LAMICTAL [Suspect]
     Indication: EPILEPSY
     Dosage: 50 MG QD ORAL
     Route: 048
     Dates: start: 20100801

REACTIONS (13)
  - AGGRESSION [None]
  - AMNESIA [None]
  - CONVULSION [None]
  - DECREASED APPETITE [None]
  - DEJA VU [None]
  - DEPRESSION [None]
  - DRUG INEFFECTIVE [None]
  - DYSPEPSIA [None]
  - FEELING ABNORMAL [None]
  - HOMICIDAL IDEATION [None]
  - NAUSEA [None]
  - PERSONALITY CHANGE [None]
  - STATUS EPILEPTICUS [None]
